FAERS Safety Report 7231571-8 (Version None)
Quarter: 2011Q1

REPORT INFORMATION
  Report Type: 
  Country: None (occurrence: None)
  Receive Date: 20110118
  Receipt Date: 20101012
  Transmission Date: 20110831
  Serious: No
  Sender: FDA-Public Use
  Company Number: US-BAYER-201022479BCC

PATIENT
  Sex: Female
  Weight: 60 kg

DRUGS (3)
  1. LORAZEPAM [Concomitant]
     Dosage: 5/ 10 MG
  2. CITALOPRAM HYDROBROMIDE [Concomitant]
     Dosage: 60 MG, UNK
  3. ALEVE [Suspect]
     Dosage: 440 MG, Q2HR

REACTIONS (1)
  - NO ADVERSE EVENT [None]
